FAERS Safety Report 5394688-9 (Version None)
Quarter: 2007Q3

REPORT INFORMATION
  Report Type: 
  Country: None (occurrence: None)
  Receive Date: 20070720
  Receipt Date: 20070628
  Transmission Date: 20080115
  Serious: Yes (Other)
  Sender: FDA-Public Use
  Company Number: 2007SP013452

PATIENT
  Age: 80 Year
  Sex: Female
  Weight: 65.7716 kg

DRUGS (4)
  1. MIRALAX [Suspect]
     Indication: CONSTIPATION
     Dosage: 17 GM; QD; PO, 17 GM; BID; PO, 17 GM; QD; PO, 17 GM;QD' PO
     Route: 048
     Dates: start: 20070619, end: 20070622
  2. MIRALAX [Suspect]
     Indication: CONSTIPATION
     Dosage: 17 GM; QD; PO, 17 GM; BID; PO, 17 GM; QD; PO, 17 GM;QD' PO
     Route: 048
     Dates: start: 20070612
  3. MIRALAX [Suspect]
     Indication: CONSTIPATION
     Dosage: 17 GM; QD; PO, 17 GM; BID; PO, 17 GM; QD; PO, 17 GM;QD' PO
     Route: 048
     Dates: start: 20070613
  4. MIRALAX [Suspect]
     Indication: CONSTIPATION
     Dosage: 17 GM; QD; PO, 17 GM; BID; PO, 17 GM; QD; PO, 17 GM;QD' PO
     Route: 048
     Dates: start: 20070614

REACTIONS (6)
  - DIARRHOEA [None]
  - DRUG INEFFECTIVE [None]
  - INTENTIONAL OVERDOSE [None]
  - OBSTRUCTION [None]
  - PAIN [None]
  - PHARMACEUTICAL PRODUCT COMPLAINT [None]
